FAERS Safety Report 4628634-X (Version None)
Quarter: 2005Q2

REPORT INFORMATION
  Report Type: 
  Country: None (occurrence: None)
  Receive Date: 20050404
  Receipt Date: 20050318
  Transmission Date: 20051028
  Serious: Yes (Other)
  Sender: FDA-Public Use
  Company Number: 2004-BP-13215NB

PATIENT
  Age: 81 Year
  Sex: Male

DRUGS (7)
  1. MOBIC [Suspect]
     Indication: PAIN IN EXTREMITY
     Dosage: 10 MG (NR), PO
     Route: 048
     Dates: start: 20041115, end: 20041116
  2. OMEPROL (OMEPRAZOLE) [Concomitant]
  3. MUCOSOLVAN (AMBROXOL HYDROCHLORIDE) [Concomitant]
  4. TANATRIL [Concomitant]
  5. FERROMIA (FERROUS CITRATE) [Concomitant]
  6. RUPRAC [Concomitant]
  7. ALOSENN [Concomitant]

REACTIONS (2)
  - OFF LABEL USE [None]
  - URINARY RETENTION [None]
